FAERS Safety Report 7282636-6 (Version None)
Quarter: 2011Q1

REPORT INFORMATION
  Report Type: 
  Country: None (occurrence: None)
  Receive Date: 20110209
  Receipt Date: 20110128
  Transmission Date: 20110831
  Serious: Yes (Hospitalization)
  Sender: FDA-Public Use
  Company Number: ES-ELI_LILLY_AND_COMPANY-ES201101006954

PATIENT
  Sex: Female

DRUGS (7)
  1. EFFERALGAN                         /00020001/ [Concomitant]
     Indication: PAIN
     Dosage: UNK, DAILY (1/D)
     Route: 048
  2. IXIA [Concomitant]
     Indication: BLOOD PRESSURE INCREASED
     Dosage: UNK, DAILY (1/D)
     Route: 048
  3. FORTEO [Suspect]
     Indication: OSTEOPOROSIS
     Dosage: 20 UG, DAILY (1/D)
     Route: 058
     Dates: start: 20090308
  4. OMEPRAZOLE [Concomitant]
     Indication: PROPHYLAXIS
     Dosage: UNK, DAILY (1/D)
     Route: 048
  5. TROMALYT [Concomitant]
     Indication: VASODILATATION
     Dosage: UNK, DAILY (1/D)
     Route: 048
  6. HIDROFEROL [Concomitant]
     Dosage: 1 D/F, WEEKLY (1/W)
     Route: 048
  7. CALCIUM [Concomitant]
     Dosage: UNK, DAILY (1/D)
     Route: 048

REACTIONS (2)
  - TENDON RUPTURE [None]
  - MENISCUS LESION [None]
